FAERS Safety Report 8792607 (Version 1)
Quarter: 2012Q4

REPORT INFORMATION
  Report Type: 
  Country: US (occurrence: US)
  Receive Date: 20120918
  Receipt Date: 20120918
  Transmission Date: 20130627
  Serious: No
  Sender: FDA-Public Use
  Company Number: US-TEVA-359260USA

PATIENT
  Age: 67 Year
  Sex: Female
  Weight: 60.84 kg

DRUGS (1)
  1. NUVIGIL [Suspect]
     Indication: SLEEP APNOEA SYNDROME
     Route: 048
     Dates: start: 20120816

REACTIONS (3)
  - Nausea [Recovered/Resolved]
  - Sleep disorder [Recovered/Resolved]
  - Headache [Not Recovered/Not Resolved]
